FAERS Safety Report 20872292 (Version 1)
Quarter: 2022Q2

REPORT INFORMATION
  Report Type: Spontaneous
  Country: CN (occurrence: CN)
  Receive Date: 20220525
  Receipt Date: 20220525
  Transmission Date: 20220721
  Serious: Yes (Death, Hospitalization, Other)
  Sender: FDA-Public Use
  Company Number: CN-QUAGEN-2022QUALIT00033

PATIENT
  Sex: Male
  Weight: 1.6 kg

DRUGS (1)
  1. PROPYLTHIOURACIL [Suspect]
     Active Substance: PROPYLTHIOURACIL
     Indication: Foetal exposure during pregnancy
     Route: 064

REACTIONS (2)
  - Noonan syndrome [Fatal]
  - Foetal exposure during pregnancy [Unknown]
